FAERS Safety Report 8321731-7 (Version None)
Quarter: 2012Q2

REPORT INFORMATION
  Report Type: 
  Country: None (occurrence: None)
  Receive Date: 20120426
  Receipt Date: 20120418
  Transmission Date: 20120825
  Serious: Yes (Life-Threatening)
  Sender: FDA-Public Use
  Company Number: 217234

PATIENT
  Age: 44 Year
  Sex: Male

DRUGS (1)
  1. INNOHEP [Suspect]
     Indication: PROPHYLAXIS
     Dosage: PREVENTATIVE DOSAGE (1 IN 1 D), SUBCUTANEOUS
     Route: 058
     Dates: start: 20120301, end: 20120401

REACTIONS (1)
  - PULMONARY EMBOLISM [None]
